FAERS Safety Report 6033088-5 (Version None)
Quarter: 2009Q1

REPORT INFORMATION
  Report Type: 
  Country: None (occurrence: None)
  Receive Date: 20090109
  Receipt Date: 20090106
  Transmission Date: 20090719
  Serious: Yes (Other)
  Sender: FDA-Public Use
  Company Number: PHHO2008GB10731

PATIENT
  Sex: Female
  Weight: 91.2 kg

DRUGS (5)
  1. CGS 20267 T30748+ [Suspect]
     Indication: BREAST CANCER
     Dosage: 2.5 MG, QD
     Route: 048
  2. ZOLEDRONIC ACID [Suspect]
     Indication: BREAST CANCER
     Dosage: 4 MG
     Route: 042
     Dates: start: 20040115, end: 20080611
  3. CALCIUM [Concomitant]
  4. VITAMIN D [Concomitant]
  5. CORSODYL [Concomitant]

REACTIONS (7)
  - CYSTITIS [None]
  - DENTAL CLEANING [None]
  - EATING DISORDER [None]
  - JAW DISORDER [None]
  - PERIODONTAL DISEASE [None]
  - RESORPTION BONE INCREASED [None]
  - TOOTH EXTRACTION [None]
